FAERS Safety Report 14401657 (Version 2)
Quarter: 2018Q2

REPORT INFORMATION
  Report Type: Spontaneous
  Country: NO (occurrence: NO)
  Receive Date: 20180117
  Receipt Date: 20180403
  Transmission Date: 20180711
  Serious: Yes (Death, Hospitalization)
  Sender: FDA-Public Use
  Company Number: NO-MYLANLABS-2018M1003030

PATIENT
  Age: 67 Year
  Sex: Male

DRUGS (17)
  1. BACTRIM [Interacting]
     Active Substance: SULFAMETHOXAZOLE\TRIMETHOPRIM
     Indication: BACTERIAL SEPSIS
     Dosage: UNK
     Route: 065
  2. PIVAMPICILLIN [Interacting]
     Active Substance: PIVAMPICILLIN
     Indication: BACTERIAL SEPSIS
     Dosage: UNK
     Route: 065
  3. ERYTHROMYCIN. [Suspect]
     Active Substance: ERYTHROMYCIN
     Indication: BACTERIAL SEPSIS
     Dosage: UNK
     Route: 065
  4. AMPICILLIN [Interacting]
     Active Substance: AMPICILLIN
     Dosage: UNK
     Route: 042
  5. GENTAMICIN. [Interacting]
     Active Substance: GENTAMICIN
     Indication: BACTERIAL SEPSIS
     Dosage: 80 MG, QD
     Route: 030
  6. GENTAMICIN. [Interacting]
     Active Substance: GENTAMICIN
     Dosage: 160 MG, QD
     Route: 030
  7. CEFALOTIN [Interacting]
     Active Substance: CEPHALOTHIN
     Route: 065
  8. CHLORAMPHENICOL [Interacting]
     Active Substance: CHLORAMPHENICOL
     Indication: BACTERIAL SEPSIS
     Dosage: UNK
     Route: 065
  9. ERYTHROMYCIN. [Suspect]
     Active Substance: ERYTHROMYCIN
     Dosage: UNK
     Route: 065
  10. CEFALOTIN [Interacting]
     Active Substance: CEPHALOTHIN
     Indication: BACTERIAL SEPSIS
     Dosage: 4 G, QD
     Route: 042
  11. PIVAMPICILLIN [Interacting]
     Active Substance: PIVAMPICILLIN
     Dosage: UNK
     Route: 065
  12. CEFALOTIN [Interacting]
     Active Substance: CEPHALOTHIN
     Dosage: 6 G, QD
     Route: 065
  13. CEFALOTIN [Interacting]
     Active Substance: CEPHALOTHIN
     Dosage: 12 G, QD
     Route: 042
  14. BACTRIM [Interacting]
     Active Substance: SULFAMETHOXAZOLE\TRIMETHOPRIM
     Dosage: UNK
     Route: 065
  15. AMPICILLIN [Interacting]
     Active Substance: AMPICILLIN
     Indication: BACTERIAL SEPSIS
     Dosage: UNK
     Route: 042
  16. LINCOCIN [Interacting]
     Active Substance: LINCOMYCIN
     Indication: BACTERIAL SEPSIS
     Dosage: UNK
     Route: 065
  17. CHLORAMPHENICOL [Interacting]
     Active Substance: CHLORAMPHENICOL
     Dosage: UNK
     Route: 065

REACTIONS (16)
  - Pyrexia [Fatal]
  - Acute kidney injury [Fatal]
  - Cardiac failure [Fatal]
  - Anaemia [Fatal]
  - Drug ineffective [Fatal]
  - Kidney enlargement [Fatal]
  - Blood creatinine increased [Fatal]
  - Renal tubular injury [Fatal]
  - Condition aggravated [Fatal]
  - Azotaemia [Fatal]
  - Anuria [Fatal]
  - Renal artery arteriosclerosis [Fatal]
  - Drug interaction [Fatal]
  - Oedematous kidney [Fatal]
  - Sepsis [Fatal]
  - Renal tubular necrosis [Fatal]
